FAERS Safety Report 9305868 (Version 3)
Quarter: 2013Q3

REPORT INFORMATION
  Report Type: Spontaneous
  Country: US (occurrence: US)
  Receive Date: 20130523
  Receipt Date: 20130723
  Transmission Date: 20140515
  Serious: Yes (Life-Threatening, Hospitalization, Disabling)
  Sender: FDA-Public Use
  Company Number: US-JNJFOC-20130511242

PATIENT
  Age: 64 Year
  Sex: Male
  Weight: 108.41 kg

DRUGS (6)
  1. XARELTO [Suspect]
     Indication: CEREBROVASCULAR ACCIDENT PROPHYLAXIS
     Route: 048
  2. XARELTO [Suspect]
     Indication: ATRIAL FIBRILLATION
     Route: 048
  3. LISINOPRIL [Concomitant]
     Route: 048
  4. PRAVASTATIN [Concomitant]
     Route: 048
  5. ASA [Concomitant]
     Route: 048
  6. SOTALOL [Concomitant]
     Route: 048

REACTIONS (1)
  - Cerebrovascular accident [Recovering/Resolving]
